FAERS Safety Report 7907112-6 (Version None)
Quarter: 2011Q4

REPORT INFORMATION
  Report Type: 
  Country: None (occurrence: None)
  Receive Date: 20111110
  Receipt Date: 20110601
  Transmission Date: 20120403
  Serious: No
  Sender: FDA-Public Use
  Company Number: US-ASTRAZENECA-2011SE34440

PATIENT
  Age: 69 Year
  Sex: Female

DRUGS (2)
  1. ZESTRIL [Suspect]
     Route: 048
  2. METOPROLOL TARTRATE [Suspect]

REACTIONS (3)
  - HEART RATE IRREGULAR [None]
  - BLOOD PRESSURE INADEQUATELY CONTROLLED [None]
  - DRUG INEFFECTIVE [None]
